FAERS Safety Report 6493133-X (Version None)
Quarter: 2009Q4

REPORT INFORMATION
  Report Type: 
  Country: None (occurrence: None)
  Receive Date: 20091209
  Receipt Date: 20091202
  Transmission Date: 20100525
  Serious: Yes (Other)
  Sender: FDA-Public Use
  Company Number: 2009SP032671

PATIENT
  Age: 29 Year
  Sex: Male

DRUGS (1)
  1. SAPHRIS [Suspect]
     Indication: DRUG USE FOR UNKNOWN INDICATION
     Dosage: 5 MG; HS; PO
     Route: 048

REACTIONS (2)
  - PARALYSIS [None]
  - SEDATION [None]
